FAERS Safety Report 12379283 (Version 2)
Quarter: 2016Q2

REPORT INFORMATION
  Report Type: Report from Study
  Country: CA (occurrence: CA)
  Receive Date: 20160517
  Receipt Date: 20160606
  Transmission Date: 20160815
  Serious: Yes (Hospitalization, Other)
  Sender: FDA-Public Use
  Company Number: CA-JNJFOC-20160514784

PATIENT
  Age: 35 Year
  Sex: Male
  Weight: 77.2 kg

DRUGS (2)
  1. REMICADE [Suspect]
     Active Substance: INFLIXIMAB
     Indication: COLITIS ULCERATIVE
     Route: 042
     Dates: start: 20140917
  2. REMICADE [Suspect]
     Active Substance: INFLIXIMAB
     Indication: CROHN^S DISEASE
     Route: 042
     Dates: start: 20140917

REACTIONS (5)
  - Product use issue [Unknown]
  - Herpes zoster [Recovered/Resolved]
  - Post procedural infection [Unknown]
  - Off label use [Unknown]
  - Colostomy closure [Unknown]

NARRATIVE: CASE EVENT DATE: 20140917
